FAERS Safety Report 25971381 (Version 1)
Quarter: 2025Q4

REPORT INFORMATION
  Report Type: Spontaneous
  Country: EU (occurrence: EU)
  Receive Date: 20251028
  Receipt Date: 20251028
  Transmission Date: 20260118
  Serious: Yes (Hospitalization)
  Sender: TEVA
  Company Number: None

PATIENT
  Age: 24 Year
  Sex: Male
  Weight: 70 kg

DRUGS (2)
  1. FLUCONAZOLE [Suspect]
     Active Substance: FLUCONAZOLE
     Indication: Aphthous ulcer
     Route: 048
     Dates: start: 20250814, end: 20250904
  2. ESOMEPRAZOLE [Suspect]
     Active Substance: ESOMEPRAZOLE
     Indication: Aphthous ulcer
     Route: 048
     Dates: start: 20250814, end: 20250904

REACTIONS (3)
  - Rash maculo-papular [Recovering/Resolving]
  - Allergic keratitis [Recovering/Resolving]
  - Oral mucosa erosion [Recovering/Resolving]

NARRATIVE: CASE EVENT DATE: 20250913
